FAERS Safety Report 17142025 (Version 8)
Quarter: 2020Q2

REPORT INFORMATION
  Report Type: Spontaneous
  Country: CA (occurrence: CA)
  Receive Date: 20191211
  Receipt Date: 20200428
  Transmission Date: 20200713
  Serious: Yes (Hospitalization, Other)
  Sender: FDA-Public Use
  Company Number: CA-ORION CORPORATION ORION PHARMA-TREX2019-5638

PATIENT
  Age: 70 Year
  Sex: Female

DRUGS (6)
  1. METHOTREXATE (TRADE NAME UNKNOWN) [Suspect]
     Active Substance: METHOTREXATE
     Indication: PRODUCT USED FOR UNKNOWN INDICATION
     Dosage: 2 PILLS
     Route: 048
  2. OMEPRAZOLE. [Concomitant]
     Active Substance: OMEPRAZOLE
     Route: 065
  3. FOLIC ACID. [Concomitant]
     Active Substance: FOLIC ACID
     Route: 065
  4. PLAQUENIL [Concomitant]
     Active Substance: HYDROXYCHLOROQUINE SULFATE
     Route: 065
     Dates: end: 2020
  5. GABAPENTIN. [Concomitant]
     Active Substance: GABAPENTIN
     Indication: FIBROMYALGIA
     Route: 065
  6. PREDNISONE. [Concomitant]
     Active Substance: PREDNISONE
     Route: 065
     Dates: start: 2020

REACTIONS (31)
  - Pain in extremity [Not Recovered/Not Resolved]
  - Hyperaesthesia [Unknown]
  - Cerebrovascular accident [Unknown]
  - Vision blurred [Unknown]
  - Pneumonia bacterial [Not Recovered/Not Resolved]
  - Pain [Not Recovered/Not Resolved]
  - Pulmonary oedema [Unknown]
  - Cardiac fibrillation [Unknown]
  - Coma [Unknown]
  - Diabetes mellitus [Unknown]
  - Upper limb fracture [Unknown]
  - Limb injury [Unknown]
  - Amnesia [Unknown]
  - Congenital foot malformation [Unknown]
  - Chest discomfort [Unknown]
  - Decreased appetite [Unknown]
  - Mobility decreased [Unknown]
  - Cough [Unknown]
  - Peripheral swelling [Recovering/Resolving]
  - Visual field defect [Unknown]
  - Gait disturbance [Unknown]
  - Alopecia [Unknown]
  - Swelling [Unknown]
  - Pneumonia [Not Recovered/Not Resolved]
  - Wheezing [Unknown]
  - Muscle spasms [Unknown]
  - Foot fracture [Unknown]
  - Limb discomfort [Unknown]
  - Malaise [Unknown]
  - Dyspnoea [Unknown]
  - Fall [Unknown]

NARRATIVE: CASE EVENT DATE: 201909
